FAERS Safety Report 5733603-2 (Version None)
Quarter: 2008Q2

REPORT INFORMATION
  Report Type: 
  Country: None (occurrence: None)
  Receive Date: 20080509
  Receipt Date: 20080430
  Transmission Date: 20081010
  Serious: Yes (Hospitalization, Other)
  Sender: FDA-Public Use
  Company Number: US-PFIZER INC-2008038233

PATIENT
  Sex: Male

DRUGS (3)
  1. ZYVOX [Suspect]
     Indication: INFECTION
     Dates: start: 20080422, end: 20080424
  2. MOBIC [Concomitant]
  3. RIFAMPIN [Concomitant]

REACTIONS (2)
  - PULMONARY EMBOLISM [None]
  - RESPIRATORY FAILURE [None]
